FAERS Safety Report 7561223-6 (Version None)
Quarter: 2011Q2

REPORT INFORMATION
  Report Type: 
  Country: None (occurrence: None)
  Receive Date: 20110621
  Receipt Date: 20100527
  Transmission Date: 20111010
  Serious: No
  Sender: FDA-Public Use
  Company Number: US-ASTRAZENECA-2010SE24656

PATIENT
  Age: 85 Year
  Sex: Female

DRUGS (2)
  1. SYMBICORT [Suspect]
     Indication: EMPHYSEMA
     Dosage: 80/4.5 UG TWO PUFFS TWICE A DAY
     Route: 055
  2. PULMICORT FLEXHALER [Suspect]
     Indication: EMPHYSEMA
     Route: 055

REACTIONS (2)
  - PRODUCT TASTE ABNORMAL [None]
  - TREMOR [None]
